FAERS Safety Report 19678691 (Version 1)
Quarter: 2021Q3

REPORT INFORMATION
  Report Type: Spontaneous
  Country: US (occurrence: US)
  Receive Date: 20210809
  Receipt Date: 20210809
  Transmission Date: 20211014
  Serious: Yes (Hospitalization)
  Sender: FDA-Public Use
  Company Number: None

PATIENT
  Age: 44 Year
  Sex: Female
  Weight: 83 kg

DRUGS (10)
  1. AMITRIPTYLINE [Concomitant]
     Active Substance: AMITRIPTYLINE
  2. INSULIN GLARGINE [Concomitant]
     Active Substance: INSULIN GLARGINE
  3. LISINOPRIL? HCTZ [Concomitant]
  4. ATORVASTATIN [Concomitant]
     Active Substance: ATORVASTATIN
  5. XIGDUO XR [Suspect]
     Active Substance: DAPAGLIFLOZIN PROPANEDIOL\METFORMIN HYDROCHLORIDE
     Indication: TYPE 2 DIABETES MELLITUS
     Route: 048
  6. LEVONORGESTREL INTRAUTERINE DEVICE [Concomitant]
     Active Substance: LEVONORGESTREL
  7. BUSPIRONE [Concomitant]
     Active Substance: BUSPIRONE HYDROCHLORIDE
  8. FLUTICASONE (FLOVENT DISKUS) [Concomitant]
  9. ALBUTEROL INHALER [Concomitant]
     Active Substance: ALBUTEROL
  10. VENLAFAXINE [Concomitant]
     Active Substance: VENLAFAXINE HYDROCHLORIDE

REACTIONS (6)
  - Sepsis [None]
  - Back pain [None]
  - Chromaturia [None]
  - Euglycaemic diabetic ketoacidosis [None]
  - Pneumonia [None]
  - Urine odour abnormal [None]

NARRATIVE: CASE EVENT DATE: 20210622
